FAERS Safety Report 5058159-1 (Version None)
Quarter: 2006Q2

REPORT INFORMATION
  Report Type: 
  Country: None (occurrence: None)
  Receive Date: 20060622
  Receipt Date: 20060123
  Transmission Date: 20061013
  Serious: Yes (Death)
  Sender: FDA-Public Use
  Company Number: US-JNJFOC-20051102271

PATIENT
  Age: 32 Year
  Sex: Male
  Weight: 77.1115 kg

DRUGS (11)
  1. DURAGESIC-100 [Suspect]
     Indication: PAIN
     Dosage: SEE IMAGE
     Route: 062
     Dates: end: 20020221
  2. DURAGESIC-100 [Suspect]
     Indication: PAIN
     Dosage: SEE IMAGE
     Route: 062
     Dates: start: 20020220
  3. NEURONTIN [Concomitant]
  4. ELAVIL [Concomitant]
  5. ALBUTEROL [Concomitant]
  6. AMITRIPTYLINE HCL [Concomitant]
  7. TEGRETOL [Concomitant]
  8. IPRATROPIUM BROMIDE [Concomitant]
  9. CLONAZEPAM [Concomitant]
  10. NITROLGLYCERIN (GLYCERYL TRINITRATE) [Concomitant]
  11. PERCOCET [Concomitant]

REACTIONS (2)
  - CARDIO-RESPIRATORY ARREST [None]
  - COMA [None]
